FAERS Safety Report 19082580 (Version 1)
Quarter: 2021Q1

REPORT INFORMATION
  Report Type: Spontaneous
  Country: US (occurrence: US)
  Receive Date: 20210331
  Receipt Date: 20210331
  Transmission Date: 20210420
  Serious: No
  Sender: FDA-Public Use
  Company Number: None

PATIENT
  Age: 56 Year
  Sex: Female

DRUGS (1)
  1. TREMFYA [Suspect]
     Active Substance: GUSELKUMAB
     Indication: PSORIASIS
     Dosage: OTHER FREQUENCY:EVERY 2 MONTHS;?
     Route: 058
     Dates: start: 20200911

REACTIONS (2)
  - Incorrect dose administered [None]
  - Device malfunction [None]

NARRATIVE: CASE EVENT DATE: 20210318
